FAERS Safety Report 7464364-7 (Version None)
Quarter: 2011Q2

REPORT INFORMATION
  Report Type: 
  Country: None (occurrence: None)
  Receive Date: 20110509
  Receipt Date: 20110427
  Transmission Date: 20111010
  Serious: Yes (Life-Threatening, Hospitalization)
  Sender: FDA-Public Use
  Company Number: DE-MEDIMMUNE-MEDI-0013070

PATIENT
  Age: 5 Month
  Sex: Female
  Weight: 2.59 kg

DRUGS (2)
  1. SYNAGIS [Suspect]
     Route: 030
     Dates: start: 20110321, end: 20110321
  2. SYNAGIS [Suspect]
     Route: 030
     Dates: start: 20110118, end: 20110216

REACTIONS (2)
  - HOSPITALISATION [None]
  - RESPIRATORY SYNCYTIAL VIRUS INFECTION [None]
